FAERS Safety Report 18741715 (Version 1)
Quarter: 2021Q1

REPORT INFORMATION
  Report Type: Spontaneous
  Country: US (occurrence: US)
  Receive Date: 20210114
  Receipt Date: 20210114
  Transmission Date: 20210419
  Serious: Yes (Hospitalization, Other)
  Sender: FDA-Public Use
  Company Number: US-BIOVITRUM-2021US0320

PATIENT
  Sex: Male
  Weight: 10 kg

DRUGS (2)
  1. SYNAGIS [Suspect]
     Active Substance: PALIVIZUMAB
     Indication: BRONCHOPULMONARY DYSPLASIA
     Route: 030
  2. SYNAGIS [Suspect]
     Active Substance: PALIVIZUMAB
     Indication: PREMATURE BABY

REACTIONS (7)
  - Aspiration [Unknown]
  - Laryngeal stenosis [Unknown]
  - Excessive granulation tissue [Unknown]
  - Fistula [Unknown]
  - Laryngeal oedema [Unknown]
  - Vocal cord dysfunction [Unknown]
  - Bronchopulmonary dysplasia [Unknown]
